FAERS Safety Report 12781632 (Version 1)
Quarter: 2016Q3

REPORT INFORMATION
  Report Type: Report from Study
  Country: US (occurrence: US)
  Receive Date: 20160926
  Receipt Date: 20160926
  Transmission Date: 20161109
  Serious: Yes (Hospitalization)
  Sender: FDA-Public Use
  Company Number: US-MYLANLABS-2016M1041026

PATIENT

DRUGS (2)
  1. CLOZAPINE. [Suspect]
     Active Substance: CLOZAPINE
     Indication: PRODUCT USED FOR UNKNOWN INDICATION
     Dosage: 50 MG, AM
  2. CLOZAPINE. [Suspect]
     Active Substance: CLOZAPINE
     Dosage: 100 MG, PM

REACTIONS (2)
  - Urinary incontinence [Unknown]
  - Neurogenic bladder [Unknown]
